FAERS Safety Report 8287506-2 (Version None)
Quarter: 2012Q2

REPORT INFORMATION
  Report Type: 
  Country: None (occurrence: None)
  Receive Date: 20120411
  Receipt Date: 20120327
  Transmission Date: 20120825
  Serious: No
  Sender: FDA-Public Use
  Company Number: B0792385A

PATIENT
  Sex: 0

DRUGS (1)
  1. CEFTAZIDIME SODIUM [Suspect]
     Indication: PRODUCT USED FOR UNKNOWN INDICATION
     Dosage: / INTRAVENOUS
     Route: 042

REACTIONS (1)
  - DISSEMINATED INTRAVASCULAR COAGULATION [None]
